FAERS Safety Report 19176314 (Version 1)
Quarter: 2021Q2

REPORT INFORMATION
  Report Type: Spontaneous
  Country: US (occurrence: US)
  Receive Date: 20210423
  Receipt Date: 20210423
  Transmission Date: 20210717
  Serious: No
  Sender: FDA-Public Use
  Company Number: US-009507513-2104USA003954

PATIENT
  Sex: Female
  Weight: 61.22 kg

DRUGS (1)
  1. JANUMET [Suspect]
     Active Substance: METFORMIN HYDROCHLORIDE\SITAGLIPTIN PHOSPHATE
     Dosage: 50?1000 MG TABLET, 1 TIME PER DAY ONE TAB, PO, QD WITH SUPPER
     Route: 048

REACTIONS (1)
  - Inappropriate schedule of product administration [Unknown]
